FAERS Safety Report 19564110 (Version 1)
Quarter: 2021Q3

REPORT INFORMATION
  Report Type: Spontaneous
  Country: US (occurrence: US)
  Receive Date: 20210716
  Receipt Date: 20210716
  Transmission Date: 20211014
  Serious: No
  Sender: FDA-Public Use
  Company Number: US-LUPIN PHARMACEUTICALS INC.-2021-11338

PATIENT
  Sex: Male

DRUGS (2)
  1. TESTOSTERONE GEL 1.62% [Suspect]
     Active Substance: TESTOSTERONE
     Dosage: 2 PUMPS A DAY (PREVIOUS PUMPS)
     Route: 065
     Dates: start: 2020
  2. TESTOSTERONE GEL 1.62% [Suspect]
     Active Substance: TESTOSTERONE
     Indication: PRODUCT USED FOR UNKNOWN INDICATION
     Dosage: 2 PUMPS A DAY
     Route: 065
     Dates: start: 2021

REACTIONS (2)
  - Device delivery system issue [Unknown]
  - No adverse event [Unknown]

NARRATIVE: CASE EVENT DATE: 20210315
